FAERS Safety Report 7687032-5 (Version None)
Quarter: 2011Q3

REPORT INFORMATION
  Report Type: 
  Country: None (occurrence: None)
  Receive Date: 20110816
  Receipt Date: 20110811
  Transmission Date: 20111222
  Serious: Yes (Death, Hospitalization)
  Sender: FDA-Public Use
  Company Number: US-BRISTOL-MYERS SQUIBB COMPANY-15727951

PATIENT
  Age: 61 Year
  Sex: Male

DRUGS (12)
  1. CISPLATIN [Suspect]
     Indication: NON-SMALL CELL LUNG CANCER
     Route: 042
     Dates: start: 20110429
  2. NORMAX [Concomitant]
     Dates: start: 20070101
  3. TRIFLUOPERAZINE HCL [Concomitant]
     Dates: start: 20090101
  4. NAVELBINE [Suspect]
     Indication: NON-SMALL CELL LUNG CANCER
     Dates: start: 20110429
  5. OMEPRAZOLE [Concomitant]
     Dates: start: 20090101
  6. SERTRALINE HYDROCHLORIDE [Concomitant]
     Dates: start: 20090101
  7. WELLBUTRIN [Concomitant]
  8. HYDROXYZINE HCL [Concomitant]
     Dates: start: 20090101
  9. CETUXIMAB [Suspect]
     Indication: NON-SMALL CELL LUNG CANCER
     Dosage: INTERRUPTED ON 29APR11.VIAL,DOSE:490MG\M2.
     Route: 042
     Dates: start: 20110429
  10. BUPROPION HCL [Concomitant]
     Dates: start: 20090101
  11. MEGACE [Concomitant]
  12. ZINC [Concomitant]

REACTIONS (8)
  - DYSPNOEA [None]
  - DEHYDRATION [None]
  - DECREASED APPETITE [None]
  - HYPOMAGNESAEMIA [None]
  - RENAL FAILURE ACUTE [None]
  - ELECTROLYTE DEPLETION [None]
  - HYPOTENSION [None]
  - NEOPLASM MALIGNANT [None]
